FAERS Safety Report 13947186 (Version 1)
Quarter: 2017Q3

REPORT INFORMATION
  Report Type: Spontaneous
  Country: US (occurrence: US)
  Receive Date: 20170907
  Receipt Date: 20170907
  Transmission Date: 20171128
  Serious: Yes (Other)
  Sender: FDA-Public Use
  Company Number: US-WEST-WARD PHARMACEUTICALS CORP.-US-H14001-17-02458

PATIENT
  Sex: Male

DRUGS (7)
  1. DURAMORPH [Suspect]
     Active Substance: MORPHINE SULFATE
     Indication: POST LAMINECTOMY SYNDROME
     Route: 065
     Dates: end: 201611
  2. BUPIVACAINE. [Suspect]
     Active Substance: BUPIVACAINE
     Indication: POST LAMINECTOMY SYNDROME
  3. UNSPECIFIED OTHER DRUG [Suspect]
     Active Substance: UNSPECIFIED INGREDIENT
     Indication: POST LAMINECTOMY SYNDROME
  4. DURAMORPH [Suspect]
     Active Substance: MORPHINE SULFATE
     Indication: PAIN
     Route: 065
     Dates: start: 2002
  5. BUPIVACAINE. [Suspect]
     Active Substance: BUPIVACAINE
     Indication: PAIN
     Route: 065
  6. UNSPECIFIED OTHER DRUG [Suspect]
     Active Substance: UNSPECIFIED INGREDIENT
     Indication: PAIN
     Route: 065
  7. COCAINE [Suspect]
     Active Substance: COCAINE
     Indication: PRODUCT USED FOR UNKNOWN INDICATION
     Route: 065

REACTIONS (12)
  - Suicidal ideation [Unknown]
  - Mental disorder [Unknown]
  - Wound [None]
  - Mood swings [Unknown]
  - Social avoidant behaviour [Unknown]
  - Pallor [None]
  - Drug tolerance increased [Unknown]
  - Imprisonment [None]
  - Abscess [None]
  - Sudden onset of sleep [Unknown]
  - Nightmare [Unknown]
  - Fatigue [Recovered/Resolved]

NARRATIVE: CASE EVENT DATE: 2009
